FAERS Safety Report 5203579-5 (Version None)
Quarter: 2007Q1

REPORT INFORMATION
  Report Type: 
  Country: None (occurrence: None)
  Receive Date: 20070110
  Receipt Date: 20061229
  Transmission Date: 20070707
  Serious: Yes (Other)
  Sender: FDA-Public Use
  Company Number: US-ROCHE-476738

PATIENT
  Age: 53 Year
  Sex: Male
  Weight: 115.7 kg

DRUGS (5)
  1. PEGASYS [Suspect]
     Indication: HEPATITIS C
     Dosage: ROUTE OF ADMINISTRATION REPORTED AS INJ. ADMINISTERED EVERY WEEK.
     Route: 050
     Dates: start: 20060915
  2. RIBAVIRIN [Suspect]
     Indication: HEPATITIS C
     Dosage: ADMINISTERED DAILY.
     Route: 048
     Dates: start: 20060915
  3. LACTULOSE [Concomitant]
     Indication: HEPATIC ENCEPHALOPATHY
     Route: 048
     Dates: start: 20030615
  4. METFORMIN HCL [Concomitant]
     Dosage: ADMINISTERED DAILY.
     Route: 048
  5. ACTOS [Concomitant]
     Dosage: ADMINISTERED DAILY.
     Route: 048

REACTIONS (4)
  - CHILLS [None]
  - HYPERAMMONAEMIA [None]
  - NAUSEA [None]
  - PYREXIA [None]
